FAERS Safety Report 9939943 (Version 1)
Quarter: 2014Q1

REPORT INFORMATION
  Report Type: Report from Study
  Country: US (occurrence: US)
  Receive Date: 20140303
  Receipt Date: 20140303
  Transmission Date: 20141002
  Serious: No
  Sender: FDA-Public Use
  Company Number: US-ABBVIE-13P-163-1035056-00

PATIENT
  Age: 33 Year
  Sex: Female

DRUGS (11)
  1. HUMIRA [Suspect]
     Indication: PSORIATIC ARTHROPATHY
     Route: 058
     Dates: start: 20121114
  2. LORTAB [Concomitant]
     Indication: PAIN
     Dosage: 7.5MG/1500MG, AS NEEDED
  3. IBUPROFEN [Concomitant]
     Indication: PAIN
     Dosage: AS NEEDED
  4. HYDROXINE [Concomitant]
     Indication: PRURITUS
     Dosage: 10-25MG, AS NEEDED
  5. CYCLOBENZAPRINE [Concomitant]
     Indication: PAIN
     Dosage: AS NEEDED
  6. PROMETHAZINE [Concomitant]
     Indication: NAUSEA
     Dosage: 1-2
  7. PROMETHAZINE [Concomitant]
     Indication: VOMITING
  8. CLOBETASOL PROPIONATE [Concomitant]
     Indication: PSORIASIS
     Dosage: USP
     Route: 061
  9. ZIANA [Concomitant]
     Indication: PSORIASIS
     Dosage: AT BEDTIME
  10. PROAIR [Concomitant]
     Indication: COUGH
     Dosage: AS NEEDED, INHALER
  11. PROAIR [Concomitant]
     Indication: WHEEZING

REACTIONS (1)
  - Diarrhoea [Recovered/Resolved]
